FAERS Safety Report 4764131-9 (Version None)
Quarter: 2005Q3

REPORT INFORMATION
  Report Type: 
  Country: None (occurrence: None)
  Receive Date: 20050906
  Receipt Date: 20050613
  Transmission Date: 20060218
  Serious: No
  Sender: FDA-Public Use
  Company Number: 2005-BP-09928BP

PATIENT
  Age: 74 Year
  Sex: Female

DRUGS (10)
  1. SPIRIVA [Suspect]
     Indication: CHRONIC OBSTRUCTIVE PULMONARY DISEASE
     Dosage: 18 MCG (18 MCG, QD), IH
     Route: 055
     Dates: start: 20050607
  2. WARFARIN SODIUM [Concomitant]
  3. TRIAMTERENE AND HYDROCHLOROTHIAZIDE [Concomitant]
  4. FOLIC ACID [Concomitant]
  5. NORVASC [Concomitant]
  6. LEVOTHYROXINE SODIUM [Concomitant]
  7. AVANDIA [Concomitant]
  8. LIPITOR [Concomitant]
  9. QUININE SULFATE [Concomitant]
  10. CELEBREX [Concomitant]

REACTIONS (1)
  - OEDEMA PERIPHERAL [None]
